FAERS Safety Report 10080908 (Version 5)
Quarter: 2016Q4

REPORT INFORMATION
  Report Type: Spontaneous
  Country: PT (occurrence: PT)
  Receive Date: 20140416
  Receipt Date: 20161013
  Transmission Date: 20170206
  Serious: Yes (Other)
  Sender: FDA-Public Use
  Company Number: PHHY2014PT044315

PATIENT
  Age: 30 Year
  Sex: Male
  Weight: 65 kg

DRUGS (6)
  1. GILENYA [Suspect]
     Active Substance: FINGOLIMOD HYDROCHLORIDE
     Dosage: 0.5 MG, QD
     Route: 048
     Dates: start: 20130315
  2. LIORESAL [Concomitant]
     Active Substance: BACLOFEN
     Dosage: 10 MG, TID
     Route: 048
     Dates: start: 2009
  3. LIORESAL [Concomitant]
     Active Substance: BACLOFEN
     Indication: MUSCLE SPASTICITY
     Dosage: UNK
     Route: 065
     Dates: start: 2008
  4. LIORESAL [Concomitant]
     Active Substance: BACLOFEN
     Dosage: 35 MG, TID
     Route: 048
     Dates: start: 201402
  5. GILENYA [Suspect]
     Active Substance: FINGOLIMOD HYDROCHLORIDE
     Indication: MULTIPLE SCLEROSIS
     Dosage: 0.5 MG, QD
     Route: 048
     Dates: start: 20130315
  6. TYSABRI [Concomitant]
     Active Substance: NATALIZUMAB
     Indication: MULTIPLE SCLEROSIS
     Dosage: ADMINISTRADO 1X/SEMANA.
     Route: 042
     Dates: start: 20100425, end: 20121221

REACTIONS (6)
  - Insomnia [Recovered/Resolved]
  - Muscle spasticity [Recovering/Resolving]
  - Depression [Recovered/Resolved]
  - Expanded disability status scale score increased [Not Recovered/Not Resolved]
  - Hepatic enzyme increased [Unknown]
  - Gamma-glutamyltransferase increased [Not Recovered/Not Resolved]

NARRATIVE: CASE EVENT DATE: 201311
